FAERS Safety Report 9398815 (Version 2)
Quarter: 2013Q3

REPORT INFORMATION
  Report Type: Spontaneous
  Country: PH (occurrence: PH)
  Receive Date: 20130713
  Receipt Date: 20130815
  Transmission Date: 20140515
  Serious: Yes (Death, Hospitalization)
  Sender: FDA-Public Use
  Company Number: PH-MERCK-1307PHL005175

PATIENT
  Sex: Female

DRUGS (1)
  1. JANUVIA [Suspect]
     Dosage: ONE TABLET, ONCE A DAY
     Route: 048

REACTIONS (2)
  - Death [Fatal]
  - Pulmonary oedema [Unknown]
